FAERS Safety Report 5034687-X (Version None)
Quarter: 2006Q2

REPORT INFORMATION
  Report Type: 
  Country: None (occurrence: None)
  Receive Date: 20060621
  Receipt Date: 20060606
  Transmission Date: 20061013
  Serious: Yes (Hospitalization)
  Sender: FDA-Public Use
  Company Number: 2006BI007418

PATIENT
  Age: 47 Year
  Sex: Female
  Weight: 56.246 kg

DRUGS (2)
  1. AVONEX [Suspect]
     Indication: MULTIPLE SCLEROSIS
     Dosage: 30 UG;QW;IM
     Route: 030
     Dates: start: 19990301, end: 20030101
  2. AVONEX [Suspect]
     Indication: MULTIPLE SCLEROSIS
     Dosage: 30 UG;QW;IM
     Route: 030
     Dates: start: 20030101

REACTIONS (4)
  - APPENDICECTOMY [None]
  - DIVERTICULITIS [None]
  - LARGE INTESTINE PERFORATION [None]
  - PYREXIA [None]
